FAERS Safety Report 6305279-7 (Version None)
Quarter: 2009Q3

REPORT INFORMATION
  Report Type: 
  Country: None (occurrence: None)
  Receive Date: 20090811
  Receipt Date: 20090730
  Transmission Date: 20100115
  Serious: Yes (Hospitalization)
  Sender: FDA-Public Use
  Company Number: PHHY2009BR31608

PATIENT
  Sex: Male

DRUGS (3)
  1. DIOVAN [Suspect]
     Dosage: 1 TABLET (160 MG) DAILY
  2. LASIX [Concomitant]
  3. A.A.S. [Concomitant]

REACTIONS (1)
  - INFARCTION [None]
